FAERS Safety Report 18818695 (Version 1)
Quarter: 2021Q1

REPORT INFORMATION
  Report Type: Spontaneous
  Country: GB (occurrence: GB)
  Receive Date: 20210201
  Receipt Date: 20210201
  Transmission Date: 20210419
  Serious: Yes (Hospitalization)
  Sender: FDA-Public Use
  Company Number: GB-009507513-2101GBR011304

PATIENT
  Age: 38 Year
  Sex: Female

DRUGS (4)
  1. RALTEGRAVIR POTASSIUM [Suspect]
     Active Substance: RALTEGRAVIR POTASSIUM
     Indication: HIV TEST
     Dosage: 800MG TWICE DAILY THEN 1200MG ONCE DAILY (USING 600MG TABLETS)
     Route: 048
  2. EMTRICITABINE (+) TENOFOVIR [Suspect]
     Active Substance: EMTRICITABINE\TENOFOVIR
     Indication: HIV TEST
     Dosage: 200MG/245MG
     Route: 048
  3. EFAVIRENZ. [Concomitant]
     Active Substance: EFAVIRENZ
     Dosage: 600 MG
     Route: 048
  4. ESOMEPRAZOLE. [Concomitant]
     Active Substance: ESOMEPRAZOLE MAGNESIUM
     Indication: OESOPHAGEAL ULCER
     Dosage: 40 MILLIGRAM, TWICE DAILY
     Route: 048

REACTIONS (1)
  - Oesophageal ulcer [Not Recovered/Not Resolved]
